FAERS Safety Report 16117604 (Version 2)
Quarter: 2020Q1

REPORT INFORMATION
  Report Type: Spontaneous
  Country: US (occurrence: AT)
  Receive Date: 20190326
  Receipt Date: 20200214
  Transmission Date: 20200409
  Serious: Yes (Other)
  Sender: FDA-Public Use
  Company Number: AT-TEVA-2019-AT-1028157

PATIENT
  Sex: Male
  Weight: 200 kg

DRUGS (6)
  1. TIGECYCLINE. [Suspect]
     Active Substance: TIGECYCLINE
     Route: 065
  2. COLISTIN SULFATE [Suspect]
     Active Substance: COLISTIN SULFATE
     Route: 065
  3. SULBACTAM [Suspect]
     Active Substance: SULBACTAM
     Route: 065
  4. AZITHROMYCIN ANHYDROUS. [Suspect]
     Active Substance: AZITHROMYCIN ANHYDROUS
     Route: 065
  5. RIFOLDIN [Suspect]
     Active Substance: RIFAMPIN
     Route: 042
  6. CUBICIN [Suspect]
     Active Substance: DAPTOMYCIN
     Route: 065

REACTIONS (5)
  - Anuria [Unknown]
  - Infection [Unknown]
  - Drug ineffective [Unknown]
  - C-reactive protein increased [Unknown]
  - Candida infection [Unknown]
